FAERS Safety Report 5085943-0 (Version None)
Quarter: 2006Q3

REPORT INFORMATION
  Report Type: 
  Country: None (occurrence: None)
  Receive Date: 20060817
  Receipt Date: 20060809
  Transmission Date: 20061208
  Serious: Yes (Hospitalization, Disabling)
  Sender: FDA-Public Use
  Company Number: 2006085343

PATIENT
  Age: 70 Year
  Sex: Female

DRUGS (6)
  1. XALATAN [Suspect]
     Indication: GLAUCOMA
     Dosage: 1.5 MCG (1.5 MCG, 1 IN 1 D), INTRAMUSCULAR
     Route: 030
  2. INSULIN [Concomitant]
  3. PURAN T4 (LEVOTHYROXINE SODIUM) [Concomitant]
  4. CAPTOPRIL [Concomitant]
  5. HYDRALAZINE HCL [Concomitant]
  6. CALTREN (NITRENDIPINE) [Concomitant]

REACTIONS (3)
  - CEREBROVASCULAR ACCIDENT [None]
  - DYSGRAPHIA [None]
  - SPEECH DISORDER [None]
